FAERS Safety Report 5608210-2 (Version None)
Quarter: 2008Q1

REPORT INFORMATION
  Report Type: 
  Country: None (occurrence: None)
  Receive Date: 20080130
  Receipt Date: 20080121
  Transmission Date: 20080703
  Serious: Yes (Hospitalization, Disabling, Other)
  Sender: FDA-Public Use
  Company Number: US-ROCHE-432854

PATIENT
  Age: 18 Year
  Sex: Male
  Weight: 59 kg

DRUGS (4)
  1. ACCUTANE [Suspect]
     Indication: ACNE
     Dosage: ACCUTANE ALTERNATING BETWEEN 40 MG AND 80 MG.
     Route: 048
     Dates: start: 19921023, end: 19930625
  2. ACCUTANE [Suspect]
     Route: 048
     Dates: start: 19930626
  3. REMICADE [Concomitant]
     Indication: COLITIS
     Dosage: REPORTED AS 3 DOSES IN 2001
     Route: 042
     Dates: start: 20010101
  4. REMICADE [Concomitant]
     Route: 042
     Dates: start: 20030314

REACTIONS (29)
  - ANAEMIA [None]
  - APPENDICITIS [None]
  - ARTHRALGIA [None]
  - CLOSTRIDIUM DIFFICILE COLITIS [None]
  - COLITIS [None]
  - COLITIS ULCERATIVE [None]
  - CROHN'S DISEASE [None]
  - DEHYDRATION [None]
  - ELECTROLYTE IMBALANCE [None]
  - ENTERITIS [None]
  - EPISTAXIS [None]
  - GASTROOESOPHAGEAL REFLUX DISEASE [None]
  - HYPOPROTEINAEMIA [None]
  - HYPOTENSION [None]
  - ILEITIS [None]
  - ILEUS [None]
  - IMPAIRED HEALING [None]
  - INFLAMMATORY BOWEL DISEASE [None]
  - MALABSORPTION [None]
  - OPTIC ATROPHY [None]
  - PANCREATITIS [None]
  - PNEUMONIA [None]
  - POLYP [None]
  - POUCHITIS [None]
  - PROCTITIS [None]
  - SMALL INTESTINAL OBSTRUCTION [None]
  - VISUAL DISTURBANCE [None]
  - VITILIGO [None]
  - WEIGHT DECREASED [None]
